FAERS Safety Report 8621277 (Version 4)
Quarter: 2013Q1

REPORT INFORMATION
  Report Type: Spontaneous
  Country: BR (occurrence: BR)
  Receive Date: 20120619
  Receipt Date: 20130205
  Transmission Date: 20140127
  Serious: Yes (Hospitalization, Other)
  Sender: FDA-Public Use
  Company Number: PHHY2012BR050855

PATIENT
  Age: 56 Year
  Sex: Male

DRUGS (4)
  1. FORASEQ [Suspect]
     Indication: DYSPNOEA
     Dosage: 1 INHALATION IN THE MORNING AND 1 INHALATION AT NIGHT
     Dates: start: 2005, end: 20120611
  2. FORASEQ [Suspect]
     Indication: FATIGUE
  3. ALOPURINOL [Concomitant]
     Indication: BLOOD URIC ACID INCREASED
     Dosage: 1 TABLET DAILY
     Route: 048
  4. DICLOFENAC SODIUM [Concomitant]
     Indication: OEDEMA PERIPHERAL
     Dosage: 1 DF, UNK (1 TABLET EVERY 12 HOURS)

REACTIONS (9)
  - Speech disorder [Not Recovered/Not Resolved]
  - Cough [Not Recovered/Not Resolved]
  - Emphysema [Recovered/Resolved]
  - Pneumonia [Recovered/Resolved]
  - Dyspnoea [Not Recovered/Not Resolved]
  - Fatigue [Recovered/Resolved]
  - Chronic obstructive pulmonary disease [Not Recovered/Not Resolved]
  - Nasal congestion [Not Recovered/Not Resolved]
  - Dysgeusia [Recovered/Resolved]
